FAERS Safety Report 17813875 (Version 1)
Quarter: 2020Q2

REPORT INFORMATION
  Report Type: Spontaneous
  Country: SE (occurrence: SE)
  Receive Date: 20200521
  Receipt Date: 20200521
  Transmission Date: 20200714
  Serious: Yes (Hospitalization)
  Sender: FDA-Public Use
  Company Number: NVSC2020SE138350

PATIENT
  Age: 79 Year
  Sex: Female

DRUGS (1)
  1. CIPROFLOXACIN. [Suspect]
     Active Substance: CIPROFLOXACIN
     Indication: PNEUMONIA
     Dosage: UNK
     Route: 065
     Dates: start: 201907, end: 201908

REACTIONS (2)
  - Tendon rupture [Recovered/Resolved with Sequelae]
  - Tendon injury [Recovered/Resolved with Sequelae]

NARRATIVE: CASE EVENT DATE: 20190730
